FAERS Safety Report 20911374 (Version 1)
Quarter: 2022Q2

REPORT INFORMATION
  Report Type: Spontaneous
  Country: US (occurrence: US)
  Receive Date: 20220603
  Receipt Date: 20220603
  Transmission Date: 20220720
  Serious: No
  Sender: FDA-Public Use
  Company Number: US-ELI_LILLY_AND_COMPANY-US202205008053

PATIENT
  Sex: Female

DRUGS (1)
  1. BEBTELOVIMAB [Suspect]
     Active Substance: BEBTELOVIMAB
     Indication: COVID-19
     Dosage: UNK UNK, SINGLE
     Route: 065
     Dates: start: 20220518, end: 20220518

REACTIONS (1)
  - Chills [Unknown]

NARRATIVE: CASE EVENT DATE: 20220518
